FAERS Safety Report 19978365 (Version 1)
Quarter: 2021Q4

REPORT INFORMATION
  Report Type: Spontaneous
  Country: US (occurrence: US)
  Receive Date: 20211020
  Receipt Date: 20211020
  Transmission Date: 20220303
  Serious: Yes (Other)
  Sender: FDA-Public Use
  Company Number: US-GLAXOSMITHKLINE-US2021GSK215720

PATIENT
  Sex: Female

DRUGS (12)
  1. ZANTAC [Suspect]
     Active Substance: RANITIDINE HYDROCHLORIDE
     Indication: Gastrooesophageal reflux disease
     Dosage: 75 MG, DAILY INITIALLY, THEN EVERY OTHER DAY
     Route: 065
     Dates: start: 1995, end: 2011
  2. ZANTAC [Suspect]
     Active Substance: RANITIDINE HYDROCHLORIDE
     Indication: Dyspepsia
     Dosage: 150 MG, DAILY INITIALLY, THEN EVERY OTHER DAY
     Route: 065
     Dates: start: 1995, end: 2011
  3. ZANTAC [Suspect]
     Active Substance: RANITIDINE HYDROCHLORIDE
     Indication: Dyspepsia
     Dosage: 300 MG, DAILY INITIALLY, THEN EVERY OTHER DAY
     Route: 065
     Dates: start: 1995, end: 2011
  4. ZANTAC [Suspect]
     Active Substance: RANITIDINE HYDROCHLORIDE
     Indication: Gastrooesophageal reflux disease
     Dosage: 75 MG, DAILY INITIALLY, THEN EVERY OTHER DAY
     Route: 065
     Dates: start: 1995, end: 2011
  5. ZANTAC [Suspect]
     Active Substance: RANITIDINE HYDROCHLORIDE
     Indication: Dyspepsia
     Dosage: 150 MG, DAILY INITIALLY, THEN EVERY OTHER DAY
     Route: 065
     Dates: start: 1995, end: 2011
  6. ZANTAC [Suspect]
     Active Substance: RANITIDINE HYDROCHLORIDE
     Indication: Dyspepsia
     Dosage: 300 MG, DAILY INITIALLY, THEN EVERY OTHER DAY
     Route: 065
     Dates: start: 1995, end: 2011
  7. RANITIDINE HYDROCHLORIDE [Suspect]
     Active Substance: RANITIDINE HYDROCHLORIDE
     Indication: Gastrooesophageal reflux disease
     Dosage: 75 MG, DAILY INITIALLY, THEN EVERY OTHER DAY
     Route: 065
     Dates: start: 2000, end: 2011
  8. RANITIDINE HYDROCHLORIDE [Suspect]
     Active Substance: RANITIDINE HYDROCHLORIDE
     Indication: Dyspepsia
     Dosage: 150 MG, DAILY INITIALLY, THEN EVERY OTHER DAY
     Route: 065
     Dates: start: 2000, end: 2011
  9. RANITIDINE HYDROCHLORIDE [Suspect]
     Active Substance: RANITIDINE HYDROCHLORIDE
     Indication: Dyspepsia
  10. RANITIDINE HYDROCHLORIDE [Suspect]
     Active Substance: RANITIDINE HYDROCHLORIDE
     Indication: Gastrooesophageal reflux disease
     Dosage: 75 MG, DAILY INITIALLY, THEN EVERY OTHER DAY
     Route: 065
     Dates: start: 2000, end: 2011
  11. RANITIDINE HYDROCHLORIDE [Suspect]
     Active Substance: RANITIDINE HYDROCHLORIDE
     Indication: Dyspepsia
     Dosage: 150 MG, DAILY INITIALLY, THEN EVERY OTHER DAY
     Route: 065
     Dates: start: 2000, end: 2011
  12. RANITIDINE HYDROCHLORIDE [Suspect]
     Active Substance: RANITIDINE HYDROCHLORIDE
     Indication: Dyspepsia

REACTIONS (1)
  - Breast cancer [Unknown]
